FAERS Safety Report 6283263-X (Version None)
Quarter: 2009Q3

REPORT INFORMATION
  Report Type: 
  Country: None (occurrence: None)
  Receive Date: 20090724
  Receipt Date: 20090723
  Transmission Date: 20100115
  Serious: Yes (Hospitalization, Disabling, Other)
  Sender: FDA-Public Use
  Company Number: DE-BIOGENIDEC-2009BI021368

PATIENT
  Age: 55 Year
  Sex: Female

DRUGS (2)
  1. TYSABRI [Suspect]
     Indication: RELAPSING-REMITTING MULTIPLE SCLEROSIS
     Route: 042
     Dates: start: 20080701, end: 20090202
  2. STEROIDS [Concomitant]
     Indication: HEMIPARESIS

REACTIONS (3)
  - BLINDNESS [None]
  - ENCEPHALITIS VIRAL [None]
  - HEMIPARESIS [None]
